FAERS Safety Report 4961686-6 (Version None)
Quarter: 2006Q2

REPORT INFORMATION
  Report Type: 
  Country: None (occurrence: None)
  Receive Date: 20060404
  Receipt Date: 20060314
  Transmission Date: 20061013
  Serious: Yes (Life-Threatening, Hospitalization)
  Sender: FDA-Public Use
  Company Number: 2006SE01479

PATIENT
  Sex: Male
  Weight: 2.8 kg

DRUGS (5)
  1. BLOPRESS [Suspect]
     Route: 064
     Dates: start: 20050921, end: 20060213
  2. DEPAKENE [Concomitant]
     Route: 064
     Dates: start: 20050118, end: 20051213
  3. DEPAKENE [Concomitant]
     Route: 064
     Dates: start: 20051214
  4. TRYPTANOL [Concomitant]
     Route: 064
     Dates: start: 20050118, end: 20050920
  5. TRYPTANOL [Concomitant]
     Route: 064
     Dates: start: 20050921, end: 20051021

REACTIONS (8)
  - BRAIN STEM AUDITORY EVOKED RESPONSE ABNORMAL [None]
  - CEREBRAL HAEMORRHAGE [None]
  - CEREBRAL INFARCTION [None]
  - DRUG EXPOSURE DURING PREGNANCY [None]
  - OSTEOGENESIS IMPERFECTA [None]
  - POOR SUCKING REFLEX [None]
  - PREMATURE BABY [None]
  - SKULL MALFORMATION [None]
